FAERS Safety Report 6424091-1 (Version None)
Quarter: 2009Q4

REPORT INFORMATION
  Report Type: 
  Country: None (occurrence: None)
  Receive Date: 20091102
  Receipt Date: 20091028
  Transmission Date: 20100525
  Serious: Yes (Life-Threatening)
  Sender: FDA-Public Use
  Company Number: PHHY2009JP42106

PATIENT
  Sex: Male
  Weight: 55 kg

DRUGS (10)
  1. NEORAL [Suspect]
     Indication: APLASIA PURE RED CELL
     Dosage: 6 MG/KG DAILY
     Route: 048
     Dates: start: 20090915
  2. NEORAL [Suspect]
     Dosage: 4 MG/KG DAILY
     Route: 048
  3. STOGAR [Suspect]
     Indication: PROPHYLAXIS
     Dosage: 10 MG, UNK
     Route: 048
     Dates: start: 20060919, end: 20091021
  4. ITRIZOLE [Suspect]
     Indication: PROPHYLAXIS
     Dosage: 100 MG, UNK
     Route: 048
     Dates: start: 20090915
  5. CRAVIT [Suspect]
     Indication: PROPHYLAXIS
     Dosage: 400 MG, UNK
     Route: 048
     Dates: start: 20090915
  6. EXJADE [Concomitant]
     Indication: IRON OVERLOAD
     Dosage: 500 MG, UNK
     Route: 048
     Dates: start: 20090623
  7. PREDONINE [Concomitant]
     Indication: MYELODYSPLASTIC SYNDROME
     Dosage: 5 MG, UNK
     Route: 048
     Dates: start: 20060919
  8. VITAMEDIN [Concomitant]
     Indication: VITAMIN SUPPLEMENTATION
     Dosage: 25 MG, UNK
     Route: 048
     Dates: start: 20061031
  9. FLIVAS [Concomitant]
     Indication: DYSURIA
     Dosage: 25 MG, UNK
     Route: 048
     Dates: start: 20090814
  10. PROMAC [Concomitant]
     Indication: PROPHYLAXIS
     Dosage: 150 MG, UNK
     Route: 048
     Dates: start: 20080529

REACTIONS (3)
  - BLOOD UREA INCREASED [None]
  - NAUSEA [None]
  - PANCYTOPENIA [None]
